FAERS Safety Report 17002180 (Version 1)
Quarter: 2019Q4

REPORT INFORMATION
  Report Type: Spontaneous
  Country: US (occurrence: US)
  Receive Date: 20191106
  Receipt Date: 20191106
  Transmission Date: 20200122
  Serious: No
  Sender: FDA-Public Use
  Company Number: US-ROCHE-2372696

PATIENT
  Age: 3 Year
  Sex: Female

DRUGS (2)
  1. PULMOZYME [Suspect]
     Active Substance: DORNASE ALFA
     Indication: PRODUCT USED FOR UNKNOWN INDICATION
     Dosage: 1 MG/ML
     Route: 065
  2. ORKAMBI [Suspect]
     Active Substance: IVACAFTOR\LUMACAFTOR
     Indication: PRODUCT USED FOR UNKNOWN INDICATION
     Route: 065

REACTIONS (4)
  - Abdominal discomfort [Unknown]
  - Headache [Unknown]
  - Vomiting [Unknown]
  - Constipation [Unknown]

NARRATIVE: CASE EVENT DATE: 20190805
